FAERS Safety Report 17204677 (Version 2)
Quarter: 2020Q2

REPORT INFORMATION
  Report Type: Spontaneous
  Country: US (occurrence: US)
  Receive Date: 20191226
  Receipt Date: 20200420
  Transmission Date: 20200713
  Serious: No
  Sender: FDA-Public Use
  Company Number: US-INCYTE CORPORATION-2019IN012781

PATIENT

DRUGS (2)
  1. JAKAFI [Suspect]
     Active Substance: RUXOLITINIB
     Dosage: 20 MG QAM AND 10 MG QPM
     Route: 048
     Dates: start: 20191120
  2. JAKAFI [Suspect]
     Active Substance: RUXOLITINIB
     Dosage: 10 MILLIGRAM, BID
     Route: 048
     Dates: start: 20191120

REACTIONS (7)
  - Muscle spasms [Unknown]
  - Platelet count abnormal [Unknown]
  - Dry mouth [Unknown]
  - Diarrhoea [Unknown]
  - Headache [Unknown]
  - Bone pain [Unknown]
  - Dysphonia [Unknown]
